FAERS Safety Report 11318020 (Version 3)
Quarter: 2016Q3

REPORT INFORMATION
  Report Type: Spontaneous
  Country: US (occurrence: US)
  Receive Date: 20150728
  Receipt Date: 20160721
  Transmission Date: 20161109
  Serious: Yes (Other)
  Sender: FDA-Public Use
  Company Number: US-009507513-1507USA012662

PATIENT
  Sex: Male
  Weight: 63.95 kg

DRUGS (6)
  1. PROSCAR [Suspect]
     Active Substance: FINASTERIDE
     Indication: POLLAKIURIA
  2. FINASTERIDE. [Suspect]
     Active Substance: FINASTERIDE
     Indication: PROSTATOMEGALY
     Dosage: 5 MG, QD
     Route: 048
     Dates: start: 20070215, end: 20140720
  3. FINASTERIDE. [Suspect]
     Active Substance: FINASTERIDE
     Indication: POLLAKIURIA
  4. PROSCAR [Suspect]
     Active Substance: FINASTERIDE
     Indication: BENIGN PROSTATIC HYPERPLASIA
  5. PROSCAR [Suspect]
     Active Substance: FINASTERIDE
     Indication: PROSTATOMEGALY
     Dosage: 5 MG, QD
     Route: 048
     Dates: start: 20040312, end: 20060605
  6. FINASTERIDE. [Suspect]
     Active Substance: FINASTERIDE
     Indication: BENIGN PROSTATIC HYPERPLASIA

REACTIONS (15)
  - Libido decreased [Recovering/Resolving]
  - Surgery [Unknown]
  - Proteinuria [Unknown]
  - Nocturia [Not Recovered/Not Resolved]
  - Drug ineffective [Unknown]
  - Haematuria [Unknown]
  - Erectile dysfunction [Not Recovered/Not Resolved]
  - Peyronie^s disease [Not Recovered/Not Resolved]
  - Depressed mood [Unknown]
  - Transurethral prostatectomy [Unknown]
  - Hypogonadism [Unknown]
  - Organic erectile dysfunction [Unknown]
  - Prostatitis [Unknown]
  - Tendon rupture [Unknown]
  - Road traffic accident [Unknown]

NARRATIVE: CASE EVENT DATE: 2006
